FAERS Safety Report 15750906 (Version 2)
Quarter: 2020Q2

REPORT INFORMATION
  Report Type: Spontaneous
  Country: DE (occurrence: DE)
  Receive Date: 20181221
  Receipt Date: 20200416
  Transmission Date: 20200713
  Serious: Yes (Other)
  Sender: FDA-Public Use
  Company Number: PHHY2018DE190314

PATIENT
  Age: 69 Year
  Sex: Female

DRUGS (3)
  1. BEVACIZUMAB. [Suspect]
     Active Substance: BEVACIZUMAB
     Indication: OVARIAN CANCER
     Dosage: 1100 MG, UNK
     Route: 042
     Dates: start: 20130404
  2. CARBOPLATIN. [Suspect]
     Active Substance: CARBOPLATIN
     Indication: OVARIAN CANCER
     Dosage: UNK
     Route: 065
  3. PACLITAXEL. [Suspect]
     Active Substance: PACLITAXEL
     Indication: OVARIAN CANCER
     Dosage: UNK
     Route: 065

REACTIONS (18)
  - Swelling face [Recovered/Resolved]
  - Eye discharge [Recovered/Resolved]
  - Cardiovascular disorder [Recovered/Resolved]
  - Restlessness [Recovered/Resolved]
  - Vomiting [Recovered/Resolved]
  - Asthenia [Recovered/Resolved]
  - Palpitations [Recovered/Resolved]
  - Diarrhoea [Recovered/Resolved]
  - Rash [Recovered/Resolved]
  - Neutropenia [Recovered/Resolved]
  - Tremor [Recovered/Resolved]
  - Abdominal pain upper [Recovered/Resolved]
  - Nausea [Recovered/Resolved]
  - Epistaxis [Recovered/Resolved]
  - Thrombocytopenia [Recovered/Resolved]
  - Dizziness [Recovered/Resolved]
  - Leukopenia [Recovered/Resolved]
  - Hypertension [Unknown]

NARRATIVE: CASE EVENT DATE: 20130411
